FAERS Safety Report 9677185 (Version 1)
Quarter: 2013Q4

REPORT INFORMATION
  Report Type: Spontaneous
  Country: DK (occurrence: DK)
  Receive Date: 20131108
  Receipt Date: 20131108
  Transmission Date: 20140711
  Serious: Yes (Other)
  Sender: FDA-Public Use
  Company Number: DK-AMGEN-DNKSP2013078032

PATIENT
  Age: 80 Year
  Sex: Male

DRUGS (3)
  1. PROLIA [Suspect]
     Indication: OSTEOPOROSIS
     Dosage: 60 MG/ML, UNK
     Route: 065
  2. PAMOL [Concomitant]
     Indication: PAIN
     Dosage: UNK
  3. MANDOLGIN [Concomitant]
     Indication: PAIN
     Dosage: UNK

REACTIONS (2)
  - Polymyalgia rheumatica [Not Recovered/Not Resolved]
  - Cataract [Not Recovered/Not Resolved]
